FAERS Safety Report 11708689 (Version 1)
Quarter: 2015Q4

REPORT INFORMATION
  Report Type: Spontaneous
  Country: US (occurrence: US)
  Receive Date: 20151104
  Receipt Date: 20151104
  Transmission Date: 20160304
  Serious: No
  Sender: FDA-Public Use
  Company Number: US-ELI_LILLY_AND_COMPANY-US201103002572

PATIENT
  Sex: Female

DRUGS (4)
  1. CALCIUM [Concomitant]
     Active Substance: CALCIUM
  2. FORTEO [Suspect]
     Active Substance: TERIPARATIDE
     Dosage: 20 UG, DAILY (1/D)
     Route: 065
     Dates: start: 201102, end: 201102
  3. VITAMIN D [Concomitant]
     Active Substance: CHOLECALCIFEROL
  4. FORTEO [Suspect]
     Active Substance: TERIPARATIDE
     Indication: OSTEOPOROSIS
     Dosage: 20 UG, DAILY (1/D)
     Route: 065
     Dates: start: 2010, end: 201102

REACTIONS (8)
  - Thoracic vertebral fracture [Unknown]
  - Atrial fibrillation [Unknown]
  - Fear [Unknown]
  - Drug level increased [Unknown]
  - Intentional product misuse [Unknown]
  - Lumbar vertebral fracture [Unknown]
  - Visual impairment [Unknown]
  - Injection site bruising [Unknown]
